FAERS Safety Report 6420246-0 (Version None)
Quarter: 2009Q4

REPORT INFORMATION
  Report Type: 
  Country: None (occurrence: None)
  Receive Date: 20091029
  Receipt Date: 20091021
  Transmission Date: 20100525
  Serious: Yes (Other)
  Sender: FDA-Public Use
  Company Number: PHHY2009DE45903

PATIENT
  Sex: Female
  Weight: 56 kg

DRUGS (1)
  1. CGS 20267 T30748+ [Suspect]
     Indication: BREAST CANCER
     Dosage: 2.5 MG, DAILY
     Route: 048
     Dates: start: 20090213

REACTIONS (3)
  - HOT FLUSH [None]
  - POLYNEUROPATHY [None]
  - SLEEP DISORDER [None]
